FAERS Safety Report 9511254 (Version 5)
Quarter: 2013Q4

REPORT INFORMATION
  Report Type: Spontaneous
  Country: US (occurrence: US)
  Receive Date: 20130910
  Receipt Date: 20131017
  Transmission Date: 20140711
  Serious: Yes (Hospitalization)
  Sender: FDA-Public Use
  Company Number: US-JNJFOC-20130901462

PATIENT
  Age: 91 Year
  Sex: Female
  Weight: 59.88 kg

DRUGS (10)
  1. XARELTO [Suspect]
     Indication: CEREBROVASCULAR ACCIDENT PROPHYLAXIS
     Route: 048
     Dates: start: 2013, end: 20130827
  2. XARELTO [Suspect]
     Indication: ATRIAL FIBRILLATION
     Route: 048
     Dates: start: 2013, end: 20130827
  3. HYDROCODONE/APAP [Concomitant]
     Indication: PAIN
     Route: 065
  4. AZOPT [Concomitant]
     Route: 065
  5. LUMIGAN [Concomitant]
     Route: 065
  6. SIMVASTATIN [Concomitant]
     Indication: DYSLIPIDAEMIA
     Dosage: EVERY NIGHT AT BED TIME
     Route: 065
     Dates: start: 2011
  7. VITAMIN D [Concomitant]
     Route: 065
  8. LOSARTAN POTASSIUM [Concomitant]
     Indication: HYPERTENSION
     Route: 065
     Dates: start: 2010
  9. DIGOSIN [Concomitant]
     Indication: ATRIAL FIBRILLATION
     Route: 065
     Dates: start: 2011
  10. DILTIAZEM CD [Concomitant]
     Indication: ATRIAL FIBRILLATION
     Route: 065
     Dates: start: 2011

REACTIONS (2)
  - Haemorrhage intracranial [Recovered/Resolved with Sequelae]
  - Haemorrhagic stroke [Recovered/Resolved with Sequelae]
